FAERS Safety Report 23571878 (Version 1)
Quarter: 2024Q1

REPORT INFORMATION
  Report Type: Report from Study
  Country: IT (occurrence: IT)
  Receive Date: 20240227
  Receipt Date: 20240227
  Transmission Date: 20240409
  Serious: Yes (Other)
  Sender: FDA-Public Use
  Company Number: IT-MINISAL02-969557

PATIENT
  Age: 62 Year
  Sex: Female

DRUGS (2)
  1. RUBRACA [Suspect]
     Active Substance: RUCAPARIB CAMSYLATE
     Indication: Ovarian cancer
     Dosage: 600 MILLIGRAM EVERY 12 HOUR(S)
     Route: 048
     Dates: start: 20230824, end: 20231116
  2. BISOPROLOL FUMARATE [Concomitant]
     Active Substance: BISOPROLOL FUMARATE
     Indication: Tachycardia
     Dosage: 1.25 MILLIGRAM EVERY 24 HOUR(S)

REACTIONS (1)
  - Hyperbilirubinaemia [Recovering/Resolving]

NARRATIVE: CASE EVENT DATE: 20231116
